FAERS Safety Report 11004732 (Version 1)
Quarter: 2015Q2

REPORT INFORMATION
  Report Type: Report from Study
  Country: US (occurrence: US)
  Receive Date: 20150409
  Receipt Date: 20150409
  Transmission Date: 20150821
  Serious: Yes (Hospitalization, Other)
  Sender: FDA-Public Use
  Company Number: US-SHIRE-US201503067

PATIENT
  Age: 16 Year
  Sex: Male

DRUGS (3)
  1. IDURSULFASE [Suspect]
     Active Substance: IDURSULFASE
     Dosage: 0.29 MG/KG, 1X/WEEK
     Route: 041
     Dates: start: 20070314
  2. IDURSULFASE [Suspect]
     Active Substance: IDURSULFASE
     Indication: MUCOPOLYSACCHARIDOSIS II
     Dosage: 0.45 MG/KG, 1X/WEEK
     Route: 041
     Dates: start: 20090121
  3. IDURSULFASE [Suspect]
     Active Substance: IDURSULFASE
     Dosage: 0.57 MG/KG, 1X/WEEK
     Route: 041
     Dates: start: 20070117, end: 2007

REACTIONS (3)
  - Tracheal stenosis [Not Recovered/Not Resolved]
  - Carpal tunnel syndrome [Unknown]
  - Lipoma [Unknown]

NARRATIVE: CASE EVENT DATE: 20141217
